FAERS Safety Report 10852251 (Version 1)
Quarter: 2015Q1

REPORT INFORMATION
  Report Type: Spontaneous
  Country: US (occurrence: US)
  Receive Date: 20150222
  Receipt Date: 20150222
  Transmission Date: 20150721
  Serious: No
  Sender: FDA-Public Use
  Company Number: US-ALLERGAN-1422310US

PATIENT
  Sex: Female

DRUGS (2)
  1. PHENETHYLAMINE [Concomitant]
     Active Substance: PHENETHYLAMINE
     Indication: WEIGHT DECREASED
  2. BOTOX COSMETIC [Suspect]
     Active Substance: ONABOTULINUMTOXINA
     Indication: PRODUCT USED FOR UNKNOWN INDICATION
     Dosage: UNK UNK, SINGLE
     Route: 030
     Dates: start: 20141006, end: 20141006

REACTIONS (1)
  - Drug ineffective [Unknown]
